FAERS Safety Report 5691275-X (Version None)
Quarter: 2008Q2

REPORT INFORMATION
  Report Type: 
  Country: None (occurrence: None)
  Receive Date: 20080402
  Receipt Date: 20080313
  Transmission Date: 20081010
  Serious: No
  Sender: FDA-Public Use
  Company Number: US-BAYER-US-2007-024187

PATIENT
  Age: 21 Year
  Sex: Female
  Weight: 68 kg

DRUGS (1)
  1. MIRENA [Suspect]
     Indication: CONTRACEPTION
     Route: 015
     Dates: start: 20061001, end: 20080227

REACTIONS (6)
  - BACK PAIN [None]
  - HEADACHE [None]
  - NAUSEA [None]
  - POST PROCEDURAL HAEMORRHAGE [None]
  - PREGNANCY TEST POSITIVE [None]
  - PROCEDURAL PAIN [None]
